FAERS Safety Report 23587008 (Version 5)
Quarter: 2024Q2

REPORT INFORMATION
  Report Type: Spontaneous
  Country: US (occurrence: US)
  Receive Date: 20240301
  Receipt Date: 20240425
  Transmission Date: 20240716
  Serious: Yes (Other)
  Sender: FDA-Public Use
  Company Number: US-UNITED THERAPEUTICS-UNT-2024-001420

PATIENT
  Age: 66 Year
  Sex: Female
  Weight: 108.84 kg

DRUGS (30)
  1. TYVASO DPI [Suspect]
     Active Substance: TREPROSTINIL
     Indication: Pulmonary arterial hypertension
     Dosage: 16 ?G, QID
  2. TYVASO DPI [Suspect]
     Active Substance: TREPROSTINIL
     Dosage: 32 ?G, QID
  3. TYVASO DPI [Suspect]
     Active Substance: TREPROSTINIL
     Dosage: 48 ?G, QID (DOSE INCREASED)
     Dates: start: 20240202, end: 202402
  4. TYVASO DPI [Suspect]
     Active Substance: TREPROSTINIL
     Dosage: 64 ?G, QID
     Dates: start: 202402
  5. TYVASO DPI [Suspect]
     Active Substance: TREPROSTINIL
     Dosage: UNK
     Dates: start: 20231228
  6. TYVASO DPI [Suspect]
     Active Substance: TREPROSTINIL
     Indication: Pulmonary arterial hypertension
     Dosage: UNK
  7. TYVASO DPI [Suspect]
     Active Substance: TREPROSTINIL
     Indication: Pulmonary arterial hypertension
     Dosage: UNK
  8. TYVASO DPI [Suspect]
     Active Substance: TREPROSTINIL
     Indication: Pulmonary arterial hypertension
     Dosage: UNK
  9. TYVASO DPI [Suspect]
     Active Substance: TREPROSTINIL
     Indication: Pulmonary arterial hypertension
     Dosage: UNK
  10. CELLCEPT [Suspect]
     Active Substance: MYCOPHENOLATE MOFETIL
     Indication: Microscopic polyangiitis
     Dosage: 500 MG, BID
     Route: 048
     Dates: start: 20230515
  11. FLONASE [Suspect]
     Active Substance: FLUTICASONE PROPIONATE
     Indication: Product used for unknown indication
     Dosage: UNK
     Route: 065
  12. SILDENAFIL CITRATE [Suspect]
     Active Substance: SILDENAFIL CITRATE
     Indication: Product used for unknown indication
     Dosage: 20 MG, TID
     Route: 048
     Dates: start: 20230403
  13. FAMOTIDINE [Concomitant]
     Active Substance: FAMOTIDINE
     Indication: Product used for unknown indication
     Dosage: 20 MG, QD
     Route: 048
     Dates: start: 20230324
  14. BREZTRI [Concomitant]
     Active Substance: BUDESONIDE\FORMOTEROL\GLYCOPYRROLATE
     Indication: Product used for unknown indication
     Dosage: 2 PUFFS, BID
     Dates: start: 20220918
  15. LASIX [Concomitant]
     Active Substance: FUROSEMIDE
     Indication: Product used for unknown indication
     Dosage: 40 MG, QD
     Route: 048
     Dates: start: 20230406
  16. SYNTHROID [Concomitant]
     Active Substance: LEVOTHYROXINE SODIUM
     Indication: Product used for unknown indication
     Dosage: 175 MCG
     Route: 048
  17. ALBUTEROL SULFATE [Concomitant]
     Active Substance: ALBUTEROL SULFATE
     Indication: Wheezing
     Dosage: 2 PUFFS, Q4H
  18. ALBUTEROL SULFATE [Concomitant]
     Active Substance: ALBUTEROL SULFATE
     Indication: Dyspnoea
  19. BUPROPION HYDROCHLORIDE XL [Concomitant]
     Active Substance: BUPROPION HYDROCHLORIDE
     Indication: Product used for unknown indication
     Dosage: 150 MG, QD
     Route: 048
     Dates: start: 20230116
  20. CALCITRIOL [Concomitant]
     Active Substance: CALCITRIOL
     Indication: Product used for unknown indication
     Dosage: 0.25 MCG, QD (EVERYDAY WITH SUPPER)
     Route: 048
     Dates: start: 20240125
  21. OXYGEN [Concomitant]
     Active Substance: OXYGEN
     Indication: Product used for unknown indication
     Dosage: UNK
     Route: 065
  22. ALLEGRA ALLERGY [Concomitant]
     Active Substance: FEXOFENADINE HYDROCHLORIDE
     Indication: Product used for unknown indication
     Dosage: UNK
     Route: 065
  23. POTASSIUM CHLORIDE [Concomitant]
     Active Substance: POTASSIUM CHLORIDE
     Indication: Product used for unknown indication
     Dosage: 10 MEQ, BID (EXTENDED RELEASE)
     Route: 048
     Dates: start: 20220808
  24. CITRACAL + D3 [Concomitant]
     Indication: Product used for unknown indication
     Dosage: UNK (MAXIMUM PLUS) (CALCIUM CITRATE- 200 MG AND VITAMIN D3- 250 UNITS)(ONE PILL 5 TIMES DAILY)
     Route: 048
     Dates: start: 20220918
  25. CITRACAL + D3 [Concomitant]
     Dosage: UNK
  26. ASPIRIN [Concomitant]
     Active Substance: ASPIRIN
     Indication: Product used for unknown indication
     Dosage: 81 MG, QHS [ORAL DELAYED RELEASE TABLET] [EC]
     Route: 048
     Dates: start: 20220918
  27. ACETAMINOPHEN [Concomitant]
     Active Substance: ACETAMINOPHEN
     Indication: Product used for unknown indication
     Dosage: UNK
     Route: 065
  28. RITUXAN [Concomitant]
     Active Substance: RITUXIMAB
     Indication: Product used for unknown indication
     Dosage: 1000 MG 2 SESSIONS, 2 WEEKS APART THEN REPEAT IN 6 MONTHS
     Route: 042
     Dates: start: 20230717
  29. MAGNESIUM LACTATE [Concomitant]
     Active Substance: MAGNESIUM LACTATE
     Indication: Product used for unknown indication
     Dosage: 84 MG, TID
     Route: 048
     Dates: start: 20230304
  30. IMODIUM A-D [Concomitant]
     Active Substance: LOPERAMIDE HYDROCHLORIDE
     Indication: Product used for unknown indication
     Dosage: 2 MG, Q4H
     Route: 048
     Dates: start: 20230502

REACTIONS (23)
  - Oxygen saturation decreased [Not Recovered/Not Resolved]
  - Microscopic polyangiitis [Unknown]
  - Abdominal discomfort [Unknown]
  - Cough [Not Recovered/Not Resolved]
  - Dyspepsia [Not Recovered/Not Resolved]
  - Oropharyngeal pain [Not Recovered/Not Resolved]
  - Abdominal pain upper [Not Recovered/Not Resolved]
  - Headache [Not Recovered/Not Resolved]
  - Dizziness postural [Recovered/Resolved]
  - Nasal dryness [Recovered/Resolved]
  - Epistaxis [Recovering/Resolving]
  - Weight increased [Recovered/Resolved]
  - Decreased activity [Recovered/Resolved]
  - Drug hypersensitivity [Unknown]
  - Throat irritation [Unknown]
  - Nausea [Unknown]
  - Urinary tract infection [Unknown]
  - Nasal congestion [Unknown]
  - Oropharyngeal discomfort [Unknown]
  - Paranasal sinus hypersecretion [Unknown]
  - Hypotension [Unknown]
  - Product after taste [Unknown]
  - Inappropriate schedule of product administration [Unknown]

NARRATIVE: CASE EVENT DATE: 20240118
